FAERS Safety Report 12389728 (Version 2)
Quarter: 2016Q3

REPORT INFORMATION
  Report Type: Report from Study
  Country: US (occurrence: US)
  Receive Date: 20160520
  Receipt Date: 20160704
  Transmission Date: 20161109
  Serious: Yes (Hospitalization, Other)
  Sender: FDA-Public Use
  Company Number: US-JNJFOC-20160516458

PATIENT
  Age: 90 Year
  Sex: Male

DRUGS (11)
  1. LEVOTHYROXINE. [Concomitant]
     Active Substance: LEVOTHYROXINE
  2. ALLOPURINOL. [Concomitant]
     Active Substance: ALLOPURINOL
  3. FAMOTIDINE. [Concomitant]
     Active Substance: FAMOTIDINE
  4. AMIODARONE [Concomitant]
     Active Substance: AMIODARONE
  5. IMBRUVICA [Suspect]
     Active Substance: IBRUTINIB
     Indication: MANTLE CELL LYMPHOMA
     Route: 048
     Dates: start: 20160315, end: 201604
  6. TAMSULOSIN [Concomitant]
     Active Substance: TAMSULOSIN
  7. FINASTERIDE. [Concomitant]
     Active Substance: FINASTERIDE
  8. LOSARTAN. [Concomitant]
     Active Substance: LOSARTAN
  9. DORZOLAMIDE [Concomitant]
     Active Substance: DORZOLAMIDE
  10. ASPIRIN. [Concomitant]
     Active Substance: ASPIRIN
  11. LATANOPROST. [Concomitant]
     Active Substance: LATANOPROST

REACTIONS (1)
  - Ischaemic stroke [Unknown]

NARRATIVE: CASE EVENT DATE: 20160414
